FAERS Safety Report 9285826 (Version 1)
Quarter: 2013Q2

REPORT INFORMATION
  Report Type: Spontaneous
  Country: US (occurrence: US)
  Receive Date: 20130513
  Receipt Date: 20130513
  Transmission Date: 20140414
  Serious: Yes (Other)
  Sender: FDA-Public Use
  Company Number: US-SANOFI-AVENTIS-2013SA047081

PATIENT
  Age: 33 Year
  Sex: Male

DRUGS (4)
  1. AUBAGIO [Suspect]
     Indication: MULTIPLE SCLEROSIS
     Dosage: PRODUCT END DATE:MARCH 2013.
     Route: 048
     Dates: start: 20130312
  2. BETASERON [Concomitant]
  3. COPAXONE [Concomitant]
  4. VITAMINS [Concomitant]

REACTIONS (2)
  - Paralysis [Recovered/Resolved]
  - Feeling abnormal [Recovered/Resolved]
